FAERS Safety Report 5087969-X (Version None)
Quarter: 2006Q3

REPORT INFORMATION
  Report Type: 
  Country: None (occurrence: None)
  Receive Date: 20060824
  Receipt Date: 20060822
  Transmission Date: 20061208
  Serious: Yes (Death)
  Sender: FDA-Public Use
  Company Number: US-JNJFOC-20060804986

PATIENT
  Sex: Female

DRUGS (2)
  1. CHILDREN'S TYLENOL LIQUID VERY BERRY STRAWBERRY [Suspect]
  2. CHILDREN'S TYLENOL LIQUID VERY BERRY STRAWBERRY [Suspect]
     Indication: DRUG USE FOR UNKNOWN INDICATION

REACTIONS (1)
  - DEATH [None]
